FAERS Safety Report 7912953-5 (Version None)
Quarter: 2011Q4

REPORT INFORMATION
  Report Type: 
  Country: None (occurrence: None)
  Receive Date: 20111114
  Receipt Date: 20111110
  Transmission Date: 20120403
  Serious: No
  Sender: FDA-Public Use
  Company Number: US-TEVA-308966USA

PATIENT
  Sex: Female
  Weight: 54.48 kg

DRUGS (2)
  1. BIRTH CONTROL PILLS [Concomitant]
     Indication: CONTRACEPTION
     Route: 048
     Dates: start: 20110901
  2. PLAN B ONE-STEP [Suspect]
     Indication: POST COITAL CONTRACEPTION
     Dosage: 1.5 MILLIGRAM;
     Route: 048
     Dates: start: 20111017, end: 20111017

REACTIONS (2)
  - MENSTRUATION IRREGULAR [None]
  - MENSTRUATION DELAYED [None]
